FAERS Safety Report 5942028-6 (Version None)
Quarter: 2008Q4

REPORT INFORMATION
  Report Type: 
  Country: None (occurrence: None)
  Receive Date: 20081104
  Receipt Date: 20081104
  Transmission Date: 20090506
  Serious: No
  Sender: FDA-Public Use
  Company Number: None

PATIENT
  Age: 64 Year
  Sex: Male

DRUGS (1)
  1. VARENICLINE [Suspect]
     Indication: NICOTINE DEPENDENCE
     Dosage: BID
     Dates: start: 20070920, end: 20080104

REACTIONS (4)
  - ABDOMINAL DISCOMFORT [None]
  - DIARRHOEA [None]
  - FLATULENCE [None]
  - TREATMENT FAILURE [None]
